FAERS Safety Report 4840707-5 (Version None)
Quarter: 2005Q4

REPORT INFORMATION
  Report Type: 
  Country: None (occurrence: None)
  Receive Date: 20051027
  Receipt Date: 20050311
  Transmission Date: 20060501
  Serious: Yes (Other)
  Sender: FDA-Public Use
  Company Number: HQWYE163416MAR05

PATIENT
  Age: 60 Year
  Sex: Female
  Weight: 47.67 kg

DRUGS (6)
  1. PREMARIN [Suspect]
     Indication: HOT FLUSH
     Dosage: ORAL
     Route: 048
     Dates: start: 19740101, end: 20031101
  2. ESTRADERM [Suspect]
     Indication: HOT FLUSH
     Dosage: TOPICAL
     Route: 061
     Dates: start: 19800101
  3. ALTACE [Concomitant]
  4. PLAVIX [Concomitant]
  5. ZOCOR [Concomitant]
  6. ASPIRIN [Concomitant]

REACTIONS (1)
  - BREAST CANCER [None]
